FAERS Safety Report 9952362 (Version 2)
Quarter: 2014Q2

REPORT INFORMATION
  Report Type: Spontaneous
  Country: GB (occurrence: GB)
  Receive Date: 20140304
  Receipt Date: 20140623
  Transmission Date: 20141212
  Serious: Yes (Hospitalization, Other)
  Sender: FDA-Public Use
  Company Number: GB-TEVA-465555ISR

PATIENT
  Age: 78 Year
  Sex: Male
  Weight: 84.7 kg

DRUGS (9)
  1. WARFARIN [Suspect]
     Indication: ATRIAL FIBRILLATION
     Dosage: 3MG/4MG ALTERNATE DAYS
     Route: 048
     Dates: start: 20130904, end: 20140212
  2. DAKTARIN [Interacting]
     Indication: ORAL CANDIDIASIS
     Dosage: USE 5ML INSIDE THE MOUTH FOUR TIMES A DAY AFTER FOOD
     Route: 048
     Dates: start: 20140124, end: 20140128
  3. ADCAL-D3 [Concomitant]
  4. ATORVASTATIN [Concomitant]
  5. FERROUS FUMARATE [Concomitant]
  6. FUROSEMIDE [Concomitant]
  7. NOVOMIX [Concomitant]
  8. SPIRONOLACTONE [Concomitant]
  9. BISOPROLOL [Concomitant]

REACTIONS (8)
  - Upper gastrointestinal haemorrhage [Recovering/Resolving]
  - Labelled drug-drug interaction medication error [Unknown]
  - Chest pain [Unknown]
  - Acute myocardial infarction [Unknown]
  - International normalised ratio increased [Recovering/Resolving]
  - Duodenal ulcer [Recovering/Resolving]
  - Gastric ulcer [Recovering/Resolving]
  - Faeces discoloured [Recovering/Resolving]
